FAERS Safety Report 5479368-3 (Version None)
Quarter: 2007Q4

REPORT INFORMATION
  Report Type: 
  Country: None (occurrence: None)
  Receive Date: 20071003
  Receipt Date: 20071003
  Transmission Date: 20080405
  Serious: Yes (Hospitalization)
  Sender: FDA-Public Use
  Company Number: None

PATIENT
  Sex: Male
  Weight: 97.6 kg

DRUGS (5)
  1. TEMOZOLOMIDE [Suspect]
     Dosage: 3400 MG
  2. COEDINE (CODEIN?) [Concomitant]
  3. DEXAMETHASONE 0.5MG TAB [Concomitant]
  4. PARACETAMOL [Concomitant]
  5. PHENYTOIN [Concomitant]

REACTIONS (3)
  - FALL [None]
  - MUSCULOSKELETAL PAIN [None]
  - PULMONARY EMBOLISM [None]
